FAERS Safety Report 6083362-1 (Version None)
Quarter: 2009Q1

REPORT INFORMATION
  Report Type: 
  Country: None (occurrence: None)
  Receive Date: 20090217
  Receipt Date: 20090130
  Transmission Date: 20090719
  Serious: Yes (Other)
  Sender: FDA-Public Use
  Company Number: 8042429

PATIENT
  Sex: Female
  Weight: 10875 kg

DRUGS (10)
  1. KEPPRA [Suspect]
     Dosage: 1000 MG, TRP
     Route: 064
     Dates: start: 20080908, end: 20080913
  2. KEPPRA [Suspect]
     Dosage: 2000 MG; TRP
     Route: 064
     Dates: start: 20080913, end: 20081207
  3. KEPPRA [Suspect]
     Dosage: 1500 MG 2/D; TRP
     Route: 064
     Dates: start: 20080929, end: 20081117
  4. KEPPRA [Suspect]
     Dosage: 3500 MG; TRP
     Route: 064
     Dates: start: 20081117, end: 20081207
  5. MARIJUANA [Suspect]
  6. CIGARETTES [Suspect]
  7. FOLIC ACID [Concomitant]
  8. VITAMIN TAB [Concomitant]
  9. ZONEGRAN [Concomitant]
  10. NICODERM [Concomitant]

REACTIONS (2)
  - FOETAL GROWTH RETARDATION [None]
  - MATERNAL DRUGS AFFECTING FOETUS [None]
